FAERS Safety Report 4561528-7 (Version None)
Quarter: 2005Q1

REPORT INFORMATION
  Report Type: 
  Country: None (occurrence: None)
  Receive Date: 20050126
  Receipt Date: 20050119
  Transmission Date: 20050727
  Serious: Yes (Hospitalization, Other)
  Sender: FDA-Public Use
  Company Number: FR-BRISTOL-MYERS SQUIBB COMPANY-12833588

PATIENT
  Age: 35 Year
  Sex: Male

DRUGS (7)
  1. ZERIT [Suspect]
     Indication: HIV INFECTION
     Route: 048
     Dates: start: 20040106, end: 20040403
  2. VIDEX EC [Suspect]
     Indication: HIV INFECTION
     Route: 048
     Dates: start: 20040106, end: 20040403
  3. SUSTIVA [Suspect]
     Indication: HIV INFECTION
     Route: 048
     Dates: start: 20040106, end: 20040402
  4. GARDENAL [Suspect]
     Route: 048
     Dates: end: 20040409
  5. SERESTA [Suspect]
     Route: 048
     Dates: start: 20030923, end: 20040403
  6. TRILEPTAL [Suspect]
     Route: 048
     Dates: start: 20040312, end: 20040319
  7. URBANYL [Concomitant]

REACTIONS (9)
  - ASTHENIA [None]
  - GLOSSITIS [None]
  - HEPATITIS C [None]
  - LUNG CREPITATION [None]
  - LYMPHADENOPATHY [None]
  - ORAL FUNGAL INFECTION [None]
  - PRURITUS [None]
  - PYREXIA [None]
  - RASH MACULO-PAPULAR [None]
